FAERS Safety Report 9385020 (Version 2)
Quarter: 2016Q3

REPORT INFORMATION
  Report Type: Spontaneous
  Country: US (occurrence: US)
  Receive Date: 20130705
  Receipt Date: 20160705
  Transmission Date: 20161109
  Serious: Yes (Hospitalization)
  Sender: FDA-Public Use
  Company Number: US-GLAXOSMITHKLINE-A1024744A

PATIENT
  Age: 32 Year
  Sex: Female

DRUGS (24)
  1. NEURONTIN [Concomitant]
     Active Substance: GABAPENTIN
  2. SKELAXIN [Concomitant]
     Active Substance: METAXALONE
  3. NORVASC [Concomitant]
     Active Substance: AMLODIPINE BESYLATE
  4. ALBUTEROL. [Concomitant]
     Active Substance: ALBUTEROL
  5. BENLYSTA [Suspect]
     Active Substance: BELIMUMAB
     Indication: SYSTEMIC LUPUS ERYTHEMATOSUS
     Dosage: EVERY 28 DAYS400 MG POSSIBLY DILUTED TO 800 MG800 MG
     Route: 042
     Dates: start: 201210
  6. CELEXA [Concomitant]
     Active Substance: CITALOPRAM HYDROBROMIDE
  7. PREDNISONE. [Concomitant]
     Active Substance: PREDNISONE
  8. IMITREX [Suspect]
     Active Substance: SUMATRIPTAN SUCCINATE
     Indication: PRODUCT USED FOR UNKNOWN INDICATION
     Route: 065
  9. TOPROL XL [Concomitant]
     Active Substance: METOPROLOL SUCCINATE
  10. AMBIEN [Concomitant]
     Active Substance: ZOLPIDEM TARTRATE
  11. ZOFRAN [Concomitant]
     Active Substance: ONDANSETRON HYDROCHLORIDE
  12. SYNTHROID [Concomitant]
     Active Substance: LEVOTHYROXINE SODIUM
  13. LISINOPRIL. [Concomitant]
     Active Substance: LISINOPRIL
  14. ADVAIR HFA [Concomitant]
     Active Substance: FLUTICASONE PROPIONATE\SALMETEROL XINAFOATE
  15. IMITREX [Suspect]
     Active Substance: SUMATRIPTAN SUCCINATE
     Indication: PRODUCT USED FOR UNKNOWN INDICATION
     Route: 065
  16. PLAQUENIL [Concomitant]
     Active Substance: HYDROXYCHLOROQUINE SULFATE
  17. COLACE [Concomitant]
     Active Substance: DOCUSATE SODIUM
  18. CALCIUM [Concomitant]
     Active Substance: CALCIUM
  19. METHOTREXATE. [Concomitant]
     Active Substance: METHOTREXATE
  20. LASIX [Concomitant]
     Active Substance: FUROSEMIDE
  21. CYMBALTA [Concomitant]
     Active Substance: DULOXETINE HYDROCHLORIDE
  22. REGLAN [Concomitant]
     Active Substance: METOCLOPRAMIDE HYDROCHLORIDE
  23. FISH OIL [Concomitant]
     Active Substance: FISH OIL
  24. IBUPROFEN. [Concomitant]
     Active Substance: IBUPROFEN

REACTIONS (12)
  - Migraine [Unknown]
  - Chest pain [Unknown]
  - Headache [Unknown]
  - Feeling abnormal [Not Recovered/Not Resolved]
  - Arthralgia [Unknown]
  - Fatigue [Unknown]
  - Pruritus generalised [Recovering/Resolving]
  - Burning sensation [Recovering/Resolving]
  - Pain in extremity [Unknown]
  - Weight increased [Not Recovered/Not Resolved]
  - Drug ineffective [Unknown]
  - Pain [Recovering/Resolving]

NARRATIVE: CASE EVENT DATE: 20140119
